FAERS Safety Report 5736056-3 (Version None)
Quarter: 2008Q2

REPORT INFORMATION
  Report Type: 
  Country: None (occurrence: None)
  Receive Date: 20080509
  Receipt Date: 20080423
  Transmission Date: 20081010
  Serious: No
  Sender: FDA-Public Use
  Company Number: 002#2#2008-00335

PATIENT
  Age: 44 Year
  Sex: Female
  Weight: 91.6266 kg

DRUGS (2)
  1. NEUPRO [Suspect]
     Indication: RESTLESS LEGS SYNDROME
     Dosage: 4MG/24H, 1 IN 1 D, TRANSDERMAL; 2MG/24H, 1 IN 1 D, TRANSDERMAL
     Route: 062
     Dates: start: 20071125, end: 20071221
  2. NEUPRO [Suspect]
     Indication: RESTLESS LEGS SYNDROME
     Dosage: 4MG/24H, 1 IN 1 D, TRANSDERMAL; 2MG/24H, 1 IN 1 D, TRANSDERMAL
     Route: 062
     Dates: start: 20071221, end: 20080218

REACTIONS (4)
  - APPLICATION SITE ERYTHEMA [None]
  - APPLICATION SITE PRURITUS [None]
  - APPLICATION SITE URTICARIA [None]
  - GAMBLING [None]
